FAERS Safety Report 24931853 (Version 1)
Quarter: 2025Q1

REPORT INFORMATION
  Report Type: Report from Study
  Country: US (occurrence: US)
  Receive Date: 20250205
  Receipt Date: 20250205
  Transmission Date: 20250408
  Serious: No
  Sender: EXELIXIS
  Company Number: US-EXELIXIS-CABO-24078963

PATIENT
  Age: 63 Year
  Sex: Male

DRUGS (2)
  1. CABOMETYX [Suspect]
     Active Substance: CABOZANTINIB S-MALATE
     Indication: Metastases to kidney
     Dosage: 60 MG, QD
     Route: 048
     Dates: start: 202406
  2. LENVIMA [Concomitant]
     Active Substance: LENVATINIB

REACTIONS (3)
  - Ear swelling [Unknown]
  - Ear pain [Unknown]
  - Off label use [Unknown]

NARRATIVE: CASE EVENT DATE: 20240601
